FAERS Safety Report 8212255-6 (Version None)
Quarter: 2012Q1

REPORT INFORMATION
  Report Type: 
  Country: None (occurrence: None)
  Receive Date: 20120315
  Receipt Date: 20120308
  Transmission Date: 20120608
  Serious: No
  Sender: FDA-Public Use
  Company Number: US-JNJFOC-20120305977

PATIENT
  Age: 34 Year
  Sex: Male

DRUGS (4)
  1. ALPRAZOLAM [Concomitant]
     Route: 065
  2. PROPRANOLOL [Concomitant]
     Route: 065
  3. INVEGA [Suspect]
     Indication: SCHIZOPHRENIA, PARANOID TYPE
     Route: 048
  4. SYMBYAX [Concomitant]
     Route: 065

REACTIONS (1)
  - DRUG EFFECT DECREASED [None]
